FAERS Safety Report 9052043 (Version 1)
Quarter: 2013Q1

REPORT INFORMATION
  Report Type: Report from Study
  Country: CA (occurrence: CA)
  Receive Date: 20130207
  Receipt Date: 20130207
  Transmission Date: 20140127
  Serious: Yes (Other)
  Sender: FDA-Public Use
  Company Number: CA-JNJFOC-20130116231

PATIENT
  Age: 20 None
  Sex: Male
  Weight: 93 kg

DRUGS (2)
  1. REMICADE [Suspect]
     Indication: CROHN^S DISEASE
     Route: 042
  2. VITAMIN B12 [Concomitant]
     Route: 065

REACTIONS (2)
  - Scleral discolouration [Not Recovered/Not Resolved]
  - Eyelid oedema [Not Recovered/Not Resolved]
